FAERS Safety Report 12607125 (Version 2)
Quarter: 2016Q3

REPORT INFORMATION
  Report Type: Spontaneous
  Country: ES (occurrence: ES)
  Receive Date: 20160729
  Receipt Date: 20160804
  Transmission Date: 20161109
  Serious: Yes (Hospitalization)
  Sender: FDA-Public Use
  Company Number: ES-ABBVIE-16P-144-1688638-00

PATIENT
  Age: 58 Year
  Sex: Male

DRUGS (2)
  1. KREON [Suspect]
     Active Substance: PANCRELIPASE
     Dosage: DAILY DOSE: 2 CAPSULES (50000) WITH MAIN MEAL
     Route: 048
     Dates: start: 201606
  2. KREON [Suspect]
     Active Substance: PANCRELIPASE
     Indication: PRODUCT USED FOR UNKNOWN INDICATION
     Dosage: 2-2-2; DAILY DOSE: 150000 UNIT
     Route: 048
     Dates: end: 201606

REACTIONS (4)
  - Product supply issue [Unknown]
  - Biliary tract infection [Unknown]
  - Back pain [Recovered/Resolved]
  - Diarrhoea [Not Recovered/Not Resolved]

NARRATIVE: CASE EVENT DATE: 201606
